FAERS Safety Report 13027892 (Version 1)
Quarter: 2016Q4

REPORT INFORMATION
  Report Type: Spontaneous
  Country: US (occurrence: US)
  Receive Date: 20161214
  Receipt Date: 20161214
  Transmission Date: 20170207
  Serious: Yes (Other)
  Sender: FDA-Public Use
  Company Number: US-PFIZER INC-2016574646

PATIENT
  Age: 53 Year
  Sex: Female

DRUGS (3)
  1. TRAMADOL. [Concomitant]
     Active Substance: TRAMADOL
     Dosage: 50 MG, 3X/DAY, UP TO TWO TABLETS
  2. HUMULIN R [Concomitant]
     Active Substance: INSULIN HUMAN
     Indication: DIABETES MELLITUS
     Dosage: SLIDING SCALE DEPENDING ON WHAT BLOOD SUGAR WAS AND HOW MUCH INSULIN SHE HAD TO TAKE
  3. VANCOMYCIN HCL [Suspect]
     Active Substance: VANCOMYCIN HYDROCHLORIDE
     Indication: LOCALISED INFECTION
     Dosage: UNK, 1X/DAY
     Route: 042
     Dates: start: 201601, end: 201602

REACTIONS (5)
  - Fluid retention [Unknown]
  - Renal failure [Not Recovered/Not Resolved]
  - Eye oedema [Unknown]
  - Visual acuity reduced [Unknown]
  - Weight increased [Unknown]

NARRATIVE: CASE EVENT DATE: 201602
